FAERS Safety Report 11690619 (Version 1)
Quarter: 2015Q4

REPORT INFORMATION
  Report Type: Report from Study
  Country: VE (occurrence: VE)
  Receive Date: 20151102
  Receipt Date: 20151102
  Transmission Date: 20160304
  Serious: Yes (Hospitalization)
  Sender: FDA-Public Use
  Company Number: PHHY2015VE141492

PATIENT
  Sex: Female

DRUGS (5)
  1. MYFORTIC [Suspect]
     Active Substance: MYCOPHENOLATE SODIUM
     Indication: RENAL TRANSPLANT
     Dosage: 360 MG, QD
     Route: 048
     Dates: start: 20130607
  2. PREDNISONE. [Concomitant]
     Active Substance: PREDNISONE
     Indication: RENAL TRANSPLANT
     Dosage: 30 MG, QD
     Route: 065
  3. PREDNISONE. [Concomitant]
     Active Substance: PREDNISONE
     Indication: STEROID THERAPY
  4. AZAPRIN [Concomitant]
     Indication: RENAL TRANSPLANT
     Dosage: 150 MG, QD
     Route: 065
  5. SANDIMMUN NEORAL [Suspect]
     Active Substance: CYCLOSPORINE
     Indication: RENAL TRANSPLANT
     Dosage: 50 MG, QD
     Route: 048
     Dates: start: 20130607

REACTIONS (3)
  - Intracranial pressure increased [Unknown]
  - Papilloedema [Unknown]
  - Kidney transplant rejection [Unknown]
